FAERS Safety Report 7493495-0 (Version None)
Quarter: 2011Q2

REPORT INFORMATION
  Report Type: 
  Country: None (occurrence: None)
  Receive Date: 20110520
  Receipt Date: 20110516
  Transmission Date: 20111010
  Serious: Yes (Other)
  Sender: FDA-Public Use
  Company Number: US-SANOFI-AVENTIS-2011SA030396

PATIENT
  Age: 79 Year
  Sex: Female

DRUGS (2)
  1. DABIGATRAN [Suspect]
     Route: 065
     Dates: start: 20110401
  2. MULTAQ [Suspect]
     Indication: ARRHYTHMIA
     Route: 048
     Dates: start: 20101201

REACTIONS (3)
  - FATIGUE [None]
  - EPISTAXIS [None]
  - GASTROINTESTINAL HAEMORRHAGE [None]
